FAERS Safety Report 7964465-0 (Version None)
Quarter: 2011Q4

REPORT INFORMATION
  Report Type: 
  Country: None (occurrence: None)
  Receive Date: 20111208
  Receipt Date: 20111128
  Transmission Date: 20120403
  Serious: Yes (Hospitalization)
  Sender: FDA-Public Use
  Company Number: US-BAYER-2011-046222

PATIENT
  Age: 34 Year
  Sex: Female
  Weight: 68.934 kg

DRUGS (10)
  1. TRAMADOL HCL [Concomitant]
     Indication: PAIN
     Dosage: 50 MG, UNK
  2. CITALOPRAM [Concomitant]
     Indication: DEPRESSION
     Dosage: UNK
  3. CYCLOBENZAPRINE [Concomitant]
  4. YAZ [Suspect]
     Indication: MENSTRUATION IRREGULAR
     Dosage: UNK
     Dates: start: 20070901, end: 20080501
  5. LEXAPRO [Concomitant]
     Indication: DEPRESSION
     Dosage: UNK UNK, QD
  6. TRICOR [Concomitant]
     Indication: BLOOD CHOLESTEROL INCREASED
     Dosage: 145 MG, UNK
  7. DOXYCYCLINE [Concomitant]
  8. LEXAPRO [Concomitant]
     Indication: ANXIETY
  9. KLOR-CON [Concomitant]
     Indication: BLOOD POTASSIUM DECREASED
     Dosage: 10 MG, UNK
  10. CITALOPRAM [Concomitant]
     Indication: ANXIETY

REACTIONS (8)
  - PULMONARY EMBOLISM [None]
  - DYSPNOEA [None]
  - FATIGUE [None]
  - EMOTIONAL DISTRESS [None]
  - ANHEDONIA [None]
  - EMBOLISM VENOUS [None]
  - WEIGHT INCREASED [None]
  - CHEST PAIN [None]
